FAERS Safety Report 4750192-X (Version None)
Quarter: 2005Q3

REPORT INFORMATION
  Report Type: 
  Country: None (occurrence: None)
  Receive Date: 20050818
  Receipt Date: 20050726
  Transmission Date: 20060218
  Serious: Yes (Other)
  Sender: FDA-Public Use
  Company Number: SUSI-2005-00330

PATIENT
  Sex: Male

DRUGS (1)
  1. CARBATROL [Suspect]
     Indication: CONVULSION
     Dosage: SEE IMAGE
     Route: 048

REACTIONS (3)
  - CONVULSION [None]
  - DRUG LEVEL DECREASED [None]
  - PHARMACEUTICAL PRODUCT COMPLAINT [None]
